FAERS Safety Report 7971223-X (Version None)
Quarter: 2011Q4

REPORT INFORMATION
  Report Type: 
  Country: None (occurrence: None)
  Receive Date: 20111212
  Receipt Date: 20111208
  Transmission Date: 20120403
  Serious: Yes (Other)
  Sender: FDA-Public Use
  Company Number: JP-PFIZER INC-2011300239

PATIENT

DRUGS (2)
  1. LYRICA [Suspect]
     Dosage: 75 MG DAILY
     Route: 048
  2. LYRICA [Suspect]
     Dosage: 25 MG, 2X/DAY
     Route: 048

REACTIONS (2)
  - DEAFNESS [None]
  - DRUG EFFECT DECREASED [None]
